FAERS Safety Report 8898858 (Version 1)
Quarter: 2012Q4

REPORT INFORMATION
  Report Type: 
  Country: US (occurrence: US)
  Receive Date: 20121108
  Receipt Date: 20121108
  Transmission Date: 20130627
  Serious: No
  Sender: FDA-Public Use
  Company Number: US-AMGEN-USASP2012033946

PATIENT
  Sex: Female
  Weight: 52.61 kg

DRUGS (6)
  1. ENBREL [Suspect]
     Indication: PRODUCT USED FOR UNKNOWN INDICATION
     Dosage: 50 mg, 2 times/wk
  2. SINGULAIR [Concomitant]
     Dosage: 10 mg, UNK
  3. ZYRTEC [Concomitant]
     Dosage: 10 mg, UNK
  4. LANOXIN [Concomitant]
     Dosage: 0.125 mg, UNK
  5. MULTIVITAMIN                       /00097801/ [Concomitant]
  6. ASPIRIN [Concomitant]
     Dosage: 81 mg, UNK

REACTIONS (3)
  - Cystitis [Unknown]
  - Sinusitis [Recovered/Resolved]
  - Hypersensitivity [Unknown]
